FAERS Safety Report 4869440-0 (Version None)
Quarter: 2005Q4

REPORT INFORMATION
  Report Type: 
  Country: None (occurrence: None)
  Receive Date: 20051230
  Receipt Date: 20051005
  Transmission Date: 20060501
  Serious: Yes (Hospitalization, Disabling)
  Sender: FDA-Public Use
  Company Number: US-MERCK-0510USA04333

PATIENT
  Age: 60 Year
  Sex: Male
  Weight: 68 kg

DRUGS (9)
  1. VIOXX [Suspect]
     Indication: ARTHRITIS
     Route: 048
     Dates: start: 20040701, end: 20040801
  2. VIOXX [Suspect]
     Indication: PAIN
     Route: 048
     Dates: start: 20040701, end: 20040801
  3. COLCHICINE [Concomitant]
     Route: 048
  4. VALSARTAN [Concomitant]
     Route: 048
  5. ASPIRIN [Concomitant]
     Route: 048
  6. NORVASC [Concomitant]
     Route: 048
  7. AMOXICILLIN [Concomitant]
     Route: 048
  8. BETAMETHASONE [Concomitant]
     Route: 048
  9. IMODIUM [Concomitant]
     Route: 065

REACTIONS (2)
  - HYPERTENSION [None]
  - ISCHAEMIC STROKE [None]
